FAERS Safety Report 15497409 (Version 2)
Quarter: 2019Q4

REPORT INFORMATION
  Report Type: Spontaneous
  Country: US (occurrence: US)
  Receive Date: 20181015
  Receipt Date: 20191202
  Transmission Date: 20200122
  Serious: No
  Sender: FDA-Public Use
  Company Number: US-PFIZER INC-2018413711

PATIENT
  Age: 63 Year
  Sex: Female
  Weight: 77.11 kg

DRUGS (4)
  1. CYMBALTA [Concomitant]
     Active Substance: DULOXETINE HYDROCHLORIDE
     Dosage: UNK
  2. LYRICA [Suspect]
     Active Substance: PREGABALIN
     Dosage: 100 MG, UNK
  3. LYRICA [Suspect]
     Active Substance: PREGABALIN
     Dosage: 150 MG, 1X/DAY
     Route: 048
  4. LYRICA [Suspect]
     Active Substance: PREGABALIN
     Indication: NEUROPATHY PERIPHERAL
     Dosage: 50 MG, 1X/DAY
     Dates: start: 2014

REACTIONS (15)
  - Throat irritation [Unknown]
  - Nerve injury [Unknown]
  - Weight increased [Not Recovered/Not Resolved]
  - Drug ineffective [Unknown]
  - Vision blurred [Unknown]
  - Intentional product misuse [Unknown]
  - Meniscus injury [Unknown]
  - Foot fracture [Unknown]
  - Dysphonia [Unknown]
  - Dizziness [Unknown]
  - Amnesia [Unknown]
  - Balance disorder [Unknown]
  - Scar [Unknown]
  - Infection [Unknown]
  - Vertigo [Unknown]

NARRATIVE: CASE EVENT DATE: 2015
